FAERS Safety Report 10582403 (Version 1)
Quarter: 2014Q4

REPORT INFORMATION
  Report Type: Spontaneous
  Country: CA (occurrence: CA)
  Receive Date: 20141113
  Receipt Date: 20141113
  Transmission Date: 20150529
  Serious: Yes (Disabling, Other)
  Sender: FDA-Public Use
  Company Number: CA-ASTRAZENECA-2014SE85006

PATIENT
  Age: 49 Year
  Sex: Male
  Weight: 95 kg

DRUGS (8)
  1. FERROUS SULFATE [Concomitant]
     Active Substance: FERROUS SULFATE\FERROUS SULFATE, DRIED
  2. ATORVASTATIN CALCIUM. [Concomitant]
     Active Substance: ATORVASTATIN CALCIUM
  3. KRILL OIL [Concomitant]
     Active Substance: DIETARY SUPPLEMENT
  4. FOLIC ACID. [Concomitant]
     Active Substance: FOLIC ACID
  5. PERINDOPRIL [Concomitant]
     Active Substance: PERINDOPRIL
  6. BRILINTA [Suspect]
     Active Substance: TICAGRELOR
     Route: 048
  7. ASA [Suspect]
     Active Substance: ASPIRIN
     Route: 048
  8. BISOPROLOL [Concomitant]
     Active Substance: BISOPROLOL

REACTIONS (5)
  - Eye haemorrhage [Unknown]
  - Angina unstable [Unknown]
  - Visual field defect [Unknown]
  - Visual acuity reduced [Unknown]
  - Optic ischaemic neuropathy [Unknown]
